FAERS Safety Report 9103067 (Version 2)
Quarter: 2013Q2

REPORT INFORMATION
  Report Type: Spontaneous
  Country: PT (occurrence: PT)
  Receive Date: 20130219
  Receipt Date: 20130425
  Transmission Date: 20140414
  Serious: Yes (Death, Hospitalization, Other)
  Sender: FDA-Public Use
  Company Number: PHHY2013PT015503

PATIENT
  Sex: Female

DRUGS (6)
  1. AMOXICILLIN [Suspect]
     Route: 064
  2. MAGNESIUM [Suspect]
     Route: 064
  3. ERYTHROMYCIN [Suspect]
     Route: 064
  4. INDOMETHACIN [Suspect]
     Route: 064
  5. STEROIDS NOS [Suspect]
     Route: 064
  6. ANTIHISTAMINES [Suspect]
     Route: 064

REACTIONS (18)
  - Death [Fatal]
  - Foetal hypokinesia [Unknown]
  - Tachycardia foetal [Unknown]
  - Bradycardia foetal [Unknown]
  - Ventricular hypokinesia [Unknown]
  - Neonatal respiratory distress syndrome [Unknown]
  - Pallor [Unknown]
  - Apnoea [Unknown]
  - Neurological decompensation [Unknown]
  - Coma [Unknown]
  - Areflexia [Unknown]
  - Hypotonia neonatal [Unknown]
  - Mydriasis [Unknown]
  - Metabolic acidosis [Unknown]
  - Hypoxic-ischaemic encephalopathy [Unknown]
  - Low birth weight baby [Unknown]
  - Premature baby [Unknown]
  - Foetal exposure during pregnancy [Unknown]
